FAERS Safety Report 14553474 (Version 1)
Quarter: 2018Q1

REPORT INFORMATION
  Report Type: Spontaneous
  Country: US (occurrence: US)
  Receive Date: 20180216
  Receipt Date: 20180216
  Transmission Date: 20180509
  Serious: Yes (Disabling)
  Sender: FDA-Public Use
  Company Number: None

PATIENT
  Sex: Female
  Weight: 92.25 kg

DRUGS (3)
  1. AZATHIOPRINE. [Concomitant]
     Active Substance: AZATHIOPRINE
  2. PREDNISONE 10 MG [Suspect]
     Active Substance: PREDNISONE
     Indication: IMMUNE SYSTEM DISORDER
     Dosage: ?          QUANTITY:1 TABLET(S);?
     Route: 048
     Dates: start: 20170801, end: 20180216
  3. ZINC. [Concomitant]
     Active Substance: ZINC

REACTIONS (8)
  - Liver function test decreased [None]
  - Hypotrichosis [None]
  - Insomnia [None]
  - Liver disorder [None]
  - Invasive breast carcinoma [None]
  - Seborrhoea [None]
  - Tremor [None]
  - Irritability [None]

NARRATIVE: CASE EVENT DATE: 20180216
